FAERS Safety Report 7508693-7 (Version None)
Quarter: 2011Q2

REPORT INFORMATION
  Report Type: 
  Country: None (occurrence: None)
  Receive Date: 20110527
  Receipt Date: 20100721
  Transmission Date: 20111010
  Serious: No
  Sender: FDA-Public Use
  Company Number: A0871692A

PATIENT
  Sex: Female

DRUGS (2)
  1. VENTOLIN [Suspect]
     Indication: ASTHMA
     Route: 055
     Dates: start: 20100714, end: 20100715
  2. ADVAIR DISKUS 100/50 [Concomitant]
     Route: 055

REACTIONS (1)
  - ORAL DISORDER [None]
